FAERS Safety Report 12179308 (Version 1)
Quarter: 2016Q1

REPORT INFORMATION
  Report Type: Spontaneous
  Country: IT (occurrence: IT)
  Receive Date: 20160314
  Receipt Date: 20160314
  Transmission Date: 20160526
  Serious: Yes (Hospitalization)
  Sender: FDA-Public Use
  Company Number: IT-SA-2016SA046658

PATIENT
  Age: 57 Year
  Sex: Female

DRUGS (15)
  1. PANTORC [Concomitant]
     Active Substance: PANTOPRAZOLE SODIUM
     Dosage: PANTORC (PANTOPRAZOLE SODIUM) 40 MG GASTRO RESISTANT TABLETS
     Route: 048
  2. CONTRAMAL [Concomitant]
     Active Substance: TRAMADOL HYDROCHLORIDE
     Dosage: CONTRAMAL (TRAMADOL HYDROCHLORIDE) 100 MG/ML ORAL DROPS, SOLUTION WITH DROPPER DOSE:60 UNIT(S)
     Route: 048
  3. SEREUPIN [Concomitant]
     Active Substance: PAROXETINE HYDROCHLORIDE
     Dosage: SEREUPIN (PAROXETINE HYDROCHLORIDE), 20 MG FILM COATED TABLETS
     Route: 048
  4. CLEXANE [Suspect]
     Active Substance: ENOXAPARIN SODIUM
     Indication: DEEP VEIN THROMBOSIS
     Route: 058
  5. TAREG [Concomitant]
     Active Substance: VALSARTAN
     Dosage: TAREG (VALSARTAN) 80 MG
     Route: 048
  6. ZYLORIC [Concomitant]
     Active Substance: ALLOPURINOL
     Dosage: ZYLORIC (ALLOPURINOL) 300 MG DIVISIBLE TABLETS
     Route: 048
  7. COUMADIN [Concomitant]
     Active Substance: WARFARIN SODIUM
     Dosage: COUMADIN (WARFARIN SODIUM), 5 MG DIVISIBLE TABLET
     Route: 065
  8. CLEXANE [Suspect]
     Active Substance: ENOXAPARIN SODIUM
     Indication: DEEP VEIN THROMBOSIS
     Route: 058
  9. LASIX [Concomitant]
     Active Substance: FUROSEMIDE
     Dosage: LASIX (FUROSEMIDE), 25 MG TABLETS
     Route: 048
  10. CARDICOR [Concomitant]
     Active Substance: BISOPROLOL
     Dosage: CARDICOR (BISOPROLOL FUMARATE) 5 MG TABLETS
     Route: 048
  11. DILZENE [Concomitant]
     Active Substance: DILTIAZEM HYDROCHLORIDE
     Dosage: DILZENE (DILTIAZEM HYDROCHLORIDE), 120 MG PROLONGED RELEASE TABLET
     Route: 048
  12. METFORALMILLE [Concomitant]
     Active Substance: METFORMIN HYDROCHLORIDE
     Route: 048
  13. LEXOTAN [Concomitant]
     Active Substance: BROMAZEPAM
     Dosage: DOSE:20 UNIT(S)
     Route: 048
  14. FERROUS SULFATE [Concomitant]
     Active Substance: FERROUS SULFATE\FERROUS SULFATE, DRIED
     Route: 048
  15. LUVION [Concomitant]
     Active Substance: CANRENONE
     Dosage: LUVION (CANRENOIC ACID), 50 MG TABLETS
     Route: 048

REACTIONS (2)
  - Oedema peripheral [Recovered/Resolved]
  - Pain in extremity [Recovered/Resolved]

NARRATIVE: CASE EVENT DATE: 20160102
